FAERS Safety Report 4948659-4 (Version None)
Quarter: 2006Q1

REPORT INFORMATION
  Report Type: 
  Country: None (occurrence: None)
  Receive Date: 20060313
  Receipt Date: 20060228
  Transmission Date: 20060701
  Serious: Yes (Hospitalization)
  Sender: FDA-Public Use
  Company Number: 2006RR-01748

PATIENT
  Age: 27 Year
  Sex: Female

DRUGS (4)
  1. IBUPROFEN [Suspect]
     Indication: MIGRAINE
     Dosage: MAX 6 TABLETS, ORAL
     Route: 048
     Dates: end: 20060208
  2. NORTRIPTYLINE HCL [Concomitant]
  3. BETAHISTINE (BETAHISTINE) [Concomitant]
  4. CYCLIZINE [Concomitant]

REACTIONS (9)
  - ABASIA [None]
  - ABDOMINAL PAIN UPPER [None]
  - ANOREXIA [None]
  - CONSTIPATION [None]
  - DIZZINESS [None]
  - HAEMATEMESIS [None]
  - RECTAL HAEMORRHAGE [None]
  - VOMITING [None]
  - WEIGHT DECREASED [None]
